FAERS Safety Report 8266174-X (Version None)
Quarter: 2012Q1

REPORT INFORMATION
  Report Type: 
  Country: None (occurrence: None)
  Receive Date: 20120327
  Receipt Date: 20091201
  Transmission Date: 20120608
  Serious: Yes (Hospitalization, Other)
  Sender: FDA-Public Use
  Company Number: PHEH2009US11486

PATIENT
  Age: 42 Year
  Sex: Female

DRUGS (1)
  1. GLEEVEC [Suspect]
     Indication: CHRONIC MYELOID LEUKAEMIA
     Dosage: 800 MG, BID, ORAL
     Route: 048
     Dates: start: 20030401, end: 20060501

REACTIONS (10)
  - FLUID RETENTION [None]
  - ASTHENIA [None]
  - ANAEMIA [None]
  - CHRONIC MYELOID LEUKAEMIA [None]
  - ALOPECIA [None]
  - DRUG INEFFECTIVE [None]
  - HAIR COLOUR CHANGES [None]
  - NAUSEA [None]
  - SKIN DEPIGMENTATION [None]
  - DIARRHOEA [None]
